FAERS Safety Report 9473283 (Version 2)
Quarter: 2013Q3

REPORT INFORMATION
  Report Type: Spontaneous
  Country: US (occurrence: US)
  Receive Date: 20130823
  Receipt Date: 20130823
  Transmission Date: 20140515
  Serious: No
  Sender: FDA-Public Use
  Company Number: US-BRISTOL-MYERS SQUIBB COMPANY-18839480

PATIENT
  Age: 58 Year
  Sex: Male

DRUGS (1)
  1. SPRYCEL [Suspect]
     Dosage: RESTARTD ON 3JUN13?2SPRYCEL 70MG TABS/D

REACTIONS (2)
  - Feeling abnormal [Unknown]
  - Hepatic function abnormal [Unknown]
